FAERS Safety Report 19087275 (Version 6)
Quarter: 2021Q3

REPORT INFORMATION
  Report Type: Report from Study
  Country: US (occurrence: US)
  Receive Date: 20210402
  Receipt Date: 20210702
  Transmission Date: 20211014
  Serious: Yes (Hospitalization, Other)
  Sender: FDA-Public Use
  Company Number: US-BAYER-2021-111740

PATIENT
  Age: 73 Year
  Sex: Female

DRUGS (6)
  1. STIVARGA [Suspect]
     Active Substance: REGORAFENIB
     Indication: HEPATOCELLULAR CARCINOMA
     Dosage: DAILY DOSE 40 MG FOR 7 DAYS
     Route: 048
     Dates: start: 20210419, end: 20210425
  2. STIVARGA [Suspect]
     Active Substance: REGORAFENIB
     Indication: HEPATOCELLULAR CARCINOMA
     Dosage: 80 MG DAILY
     Route: 048
     Dates: start: 20210526
  3. STIVARGA [Suspect]
     Active Substance: REGORAFENIB
     Indication: HEPATOCELLULAR CARCINOMA
     Dosage: DAILY DOSE 120 MG  FOR 21 DAYS AND OFF 7 DAYS
     Route: 048
     Dates: start: 20210322, end: 20210328
  4. COVID?19 VACCINE [Concomitant]
     Dosage: UNK
     Dates: start: 20210409, end: 20210409
  5. STIVARGA [Suspect]
     Active Substance: REGORAFENIB
     Indication: HEPATOCELLULAR CARCINOMA
     Dosage: DAILY DOSE 80 MG
     Route: 048
     Dates: start: 20210426, end: 2021
  6. STIVARGA [Suspect]
     Active Substance: REGORAFENIB
     Indication: HEPATOCELLULAR CARCINOMA
     Dosage: DAILY DOSE 120 MG
     Route: 048
     Dates: end: 20210517

REACTIONS (25)
  - Paraesthesia [Not Recovered/Not Resolved]
  - Skin induration [Not Recovered/Not Resolved]
  - Tongue erythema [Not Recovered/Not Resolved]
  - Hair colour changes [Recovering/Resolving]
  - Pain in extremity [Recovering/Resolving]
  - Skin exfoliation [Not Recovered/Not Resolved]
  - Memory impairment [Not Recovered/Not Resolved]
  - Pre-existing condition improved [Recovered/Resolved]
  - Taste disorder [Not Recovered/Not Resolved]
  - Aphasia [Not Recovered/Not Resolved]
  - Mobility decreased [Recovering/Resolving]
  - Headache [Recovering/Resolving]
  - Fatigue [Not Recovered/Not Resolved]
  - Hyperkeratosis [Recovering/Resolving]
  - Gait disturbance [Not Recovered/Not Resolved]
  - Hair texture abnormal [Recovering/Resolving]
  - Hypoaesthesia [Not Recovered/Not Resolved]
  - Blister [None]
  - Pain in extremity [Not Recovered/Not Resolved]
  - Pyrexia [Recovering/Resolving]
  - Hypertension [Recovering/Resolving]
  - Neuropathy peripheral [Not Recovered/Not Resolved]
  - Erythema [Not Recovered/Not Resolved]
  - Off label use [Not Recovered/Not Resolved]
  - Hyperkeratosis [Not Recovered/Not Resolved]

NARRATIVE: CASE EVENT DATE: 202103
